FAERS Safety Report 10175112 (Version 2)
Quarter: 2014Q2

REPORT INFORMATION
  Report Type: Spontaneous
  Country: FR (occurrence: FR)
  Receive Date: 20140515
  Receipt Date: 20140523
  Transmission Date: 20141212
  Serious: Yes (Hospitalization)
  Sender: FDA-Public Use
  Company Number: FR-TEVA-481812USA

PATIENT
  Age: 74 Year
  Sex: Female

DRUGS (14)
  1. LEVACT [Suspect]
     Indication: PRODUCT USED FOR UNKNOWN INDICATION
     Route: 042
     Dates: start: 20130904
  2. LEVACT [Suspect]
     Route: 042
     Dates: start: 20131016
  3. LEVACT [Suspect]
     Route: 042
     Dates: start: 20131113, end: 20131114
  4. MABTHERA [Suspect]
     Route: 042
     Dates: start: 20131016, end: 20131113
  5. MABTHERA [Suspect]
     Dates: start: 20131113, end: 20131114
  6. KARDEGIC [Concomitant]
     Dosage: 75 MILLIGRAM DAILY;
  7. EUPANTOL [Concomitant]
     Dosage: 40 MILLIGRAM DAILY;
  8. AMLODIPINE [Concomitant]
     Dosage: 10 MILLIGRAM DAILY;
  9. LASILIX [Concomitant]
     Indication: PROPHYLAXIS
     Dosage: 80 MILLIGRAM DAILY;
  10. VENTOLINE [Concomitant]
     Indication: ASTHMA
     Dosage: 6 PUFFS DAILY
  11. SERETIDE [Concomitant]
     Dosage: 250/50 UG. 4 PUFS DAILY
  12. FASTURTEC [Concomitant]
  13. GRANOCYTE [Concomitant]
  14. EUPRESSYL [Concomitant]
     Dosage: 120 MILLIGRAM DAILY;

REACTIONS (2)
  - Pancytopenia [Recovered/Resolved]
  - Febrile neutropenia [Recovered/Resolved]
